FAERS Safety Report 4611603-3 (Version None)
Quarter: 2005Q1

REPORT INFORMATION
  Report Type: 
  Country: None (occurrence: None)
  Receive Date: 20050317
  Receipt Date: 20050315
  Transmission Date: 20050727
  Serious: Yes (Other)
  Sender: FDA-Public Use
  Company Number: FR-GLAXOSMITHKLINE-B0374756A

PATIENT
  Age: 48 Year
  Sex: Male

DRUGS (1)
  1. ZYBAN [Suspect]
     Dosage: 150MG SEE DOSAGE TEXT
     Route: 048
     Dates: start: 20050101, end: 20050204

REACTIONS (6)
  - ANOREXIA [None]
  - DEPERSONALISATION [None]
  - DEPRESSION [None]
  - EMOTIONAL DISTRESS [None]
  - SUICIDAL IDEATION [None]
  - WEIGHT DECREASED [None]
